FAERS Safety Report 8774323 (Version 1)
Quarter: 2012Q4

REPORT INFORMATION
  Report Type: 
  Country: DE (occurrence: DE)
  Receive Date: 20120907
  Receipt Date: 20120907
  Transmission Date: 20130627
  Serious: Yes (Other)
  Sender: FDA-Public Use
  Company Number: DE-PFIZER INC-2012218257

PATIENT
  Sex: Male

DRUGS (2)
  1. SORTIS [Suspect]
     Dosage: 20 mg, UNK
  2. ATORVASTATIN CALCIUM [Suspect]

REACTIONS (2)
  - Angina pectoris [Unknown]
  - Muscle disorder [Unknown]
